FAERS Safety Report 7531906-2 (Version None)
Quarter: 2011Q2

REPORT INFORMATION
  Report Type: 
  Country: None (occurrence: None)
  Receive Date: 20110608
  Receipt Date: 20110525
  Transmission Date: 20111010
  Serious: Yes (Other)
  Sender: FDA-Public Use
  Company Number: DE-JNJFOC-20110600650

PATIENT
  Sex: Female
  Weight: 110 kg

DRUGS (6)
  1. TRAMADOL HCL [Suspect]
     Indication: PRODUCT USED FOR UNKNOWN INDICATION
     Route: 048
     Dates: end: 20101209
  2. CODEINE SULFATE [Concomitant]
     Dates: end: 20101209
  3. CITALOPRAM HYDROBROMIDE [Suspect]
     Indication: DEPRESSION
     Route: 048
     Dates: end: 20101209
  4. ENALAPRIL MALEATE [Suspect]
     Indication: HYPERTENSION
     Route: 048
  5. AMLODIPINE [Suspect]
     Indication: HYPERTENSION
     Route: 048
  6. ACETAMINOPHEN [Concomitant]
     Dates: end: 20101209

REACTIONS (4)
  - OVERDOSE [None]
  - SUBSTANCE ABUSE [None]
  - DRUG EXPOSURE DURING PREGNANCY [None]
  - ABORTION SPONTANEOUS [None]
